FAERS Safety Report 15678499 (Version 1)
Quarter: 2018Q4

REPORT INFORMATION
  Report Type: Spontaneous
  Country: US (occurrence: US)
  Receive Date: 20181130
  Receipt Date: 20181130
  Transmission Date: 20190205
  Serious: Yes (Other)
  Sender: FDA-Public Use
  Company Number: None

PATIENT
  Age: 68 Year
  Sex: Female
  Weight: 51.3 kg

DRUGS (3)
  1. NEVANAC [Concomitant]
     Active Substance: NEPAFENAC
     Dates: start: 20120610
  2. DUREZOL [Concomitant]
     Active Substance: DIFLUPREDNATE
     Dates: start: 20120612
  3. BESIVANCE [Suspect]
     Active Substance: BESIFLOXACIN
     Indication: CATARACT OPERATION
     Route: 047
     Dates: start: 20120610, end: 20120626

REACTIONS (9)
  - Drug hypersensitivity [None]
  - Temperature intolerance [None]
  - Facial nerve disorder [None]
  - Neck pain [None]
  - Hypoaesthesia [None]
  - Pruritus [None]
  - Ocular procedural complication [None]
  - Flushing [None]
  - Facial pain [None]

NARRATIVE: CASE EVENT DATE: 20120612
